FAERS Safety Report 7432863-X (Version None)
Quarter: 2011Q2

REPORT INFORMATION
  Report Type: 
  Country: None (occurrence: None)
  Receive Date: 20110422
  Receipt Date: 20110415
  Transmission Date: 20111010
  Serious: Yes (Other)
  Sender: FDA-Public Use
  Company Number: GB-ABBOTT-11P-167-0716348-00

PATIENT
  Age: 35 Year
  Sex: Female
  Weight: 56 kg

DRUGS (5)
  1. LORATADINE [Concomitant]
     Indication: ANTIALLERGIC THERAPY
     Route: 065
     Dates: start: 20110317, end: 20110324
  2. DARUNAVIR [Suspect]
     Indication: HIV INFECTION
     Route: 048
     Dates: start: 20110307, end: 20110318
  3. TRUVADA [Suspect]
     Indication: HIV INFECTION
     Route: 065
     Dates: start: 20110317, end: 20110318
  4. KIVEXA [Suspect]
     Indication: HIV INFECTION
     Route: 065
     Dates: start: 20110307, end: 20110317
  5. NORVIR [Suspect]
     Indication: HIV INFECTION
     Route: 065
     Dates: start: 20110307, end: 20110318

REACTIONS (4)
  - LIP SWELLING [None]
  - ORAL MUCOSAL ERUPTION [None]
  - RASH GENERALISED [None]
  - MALAISE [None]
